FAERS Safety Report 6040784-2 (Version None)
Quarter: 2009Q1

REPORT INFORMATION
  Report Type: 
  Country: None (occurrence: None)
  Receive Date: 20090116
  Receipt Date: 20080527
  Transmission Date: 20090719
  Serious: No
  Sender: FDA-Public Use
  Company Number: US-BRISTOL-MYERS SQUIBB COMPANY-14206296

PATIENT
  Age: 27 Year
  Sex: Male
  Weight: 61 kg

DRUGS (2)
  1. ABILIFY [Suspect]
     Indication: SCHIZOAFFECTIVE DISORDER
     Dosage: STARTED AT DOSE OF 20MG QD DOSE REDUCED TO 15MG ON 24-MAY-2008
     Dates: start: 20080401
  2. INVEGA [Concomitant]

REACTIONS (1)
  - RESTLESSNESS [None]
